FAERS Safety Report 17987768 (Version 1)
Quarter: 2020Q3

REPORT INFORMATION
  Report Type: Spontaneous
  Country: US (occurrence: US)
  Receive Date: 20200706
  Receipt Date: 20200706
  Transmission Date: 20201103
  Serious: Yes (Life-Threatening)
  Sender: FDA-Public Use
  Company Number: None

PATIENT
  Age: 70 Year
  Sex: Male

DRUGS (1)
  1. CETUXIMAB (CETUXIMAB 2MG/ML INJ, 50ML) [Suspect]
     Active Substance: CETUXIMAB
     Indication: LARYNGEAL SQUAMOUS CELL CARCINOMA
     Route: 042
     Dates: start: 20200420, end: 20200420

REACTIONS (4)
  - Infusion related reaction [None]
  - Anaphylactic reaction [None]
  - Angioedema [None]
  - Hypotension [None]

NARRATIVE: CASE EVENT DATE: 20200420
